FAERS Safety Report 8183663 (Version 2)
Quarter: 2013Q3

REPORT INFORMATION
  Report Type: Report from Study
  Country: US (occurrence: US)
  Receive Date: 20111017
  Receipt Date: 20130827
  Transmission Date: 20140515
  Serious: Yes (Other)
  Sender: FDA-Public Use
  Company Number: PHHO2010US03778

PATIENT
  Age: 36 Year
  Sex: Male
  Weight: 57.7 kg

DRUGS (1)
  1. GILENYA [Suspect]
     Indication: MULTIPLE SCLEROSIS
     Dosage: DOSE BLINDED
     Route: 048
     Dates: start: 20090224, end: 20100305

REACTIONS (1)
  - Squamous cell carcinoma of skin [Recovered/Resolved]
